FAERS Safety Report 6639850-X (Version None)
Quarter: 2010Q1

REPORT INFORMATION
  Report Type: 
  Country: None (occurrence: None)
  Receive Date: 20100318
  Receipt Date: 20100310
  Transmission Date: 20100710
  Serious: Yes (Other)
  Sender: FDA-Public Use
  Company Number: AU-NAPPMUNDI-GBR-2010-0006257

PATIENT
  Age: 67 Year
  Sex: Male

DRUGS (5)
  1. MORPHINE SULFATE [Suspect]
     Indication: ANALGESIC THERAPY
     Dosage: 120 MG, UNK
     Route: 048
  2. CHLORPROMAZINE [Concomitant]
     Route: 065
  3. THIETHYLPERAZINE [Concomitant]
     Indication: PROPHYLAXIS OF NAUSEA AND VOMITING
     Route: 065
  4. NAPROXEN [Concomitant]
     Indication: ANALGESIC INTERVENTION SUPPORTIVE THERAPY
     Route: 065
  5. TEMAZEPAM [Concomitant]
     Route: 065

REACTIONS (1)
  - HYPERAESTHESIA [None]
